FAERS Safety Report 7191871-7 (Version None)
Quarter: 2010Q4

REPORT INFORMATION
  Report Type: 
  Country: None (occurrence: None)
  Receive Date: 20101223
  Receipt Date: 20101210
  Transmission Date: 20110411
  Serious: Yes (Other)
  Sender: FDA-Public Use
  Company Number: PHEH2009US04078

PATIENT
  Sex: Female

DRUGS (12)
  1. FEMARA [Suspect]
     Indication: BREAST CANCER
     Dosage: 2.5 MG, QD
     Route: 048
     Dates: start: 20060501
  2. CATAPRES-TTS-1 [Concomitant]
     Dosage: UNK
  3. PROVIGIL [Concomitant]
     Dosage: UNK
  4. PAXIL [Concomitant]
     Dosage: UNK
  5. WELLBUTRIN [Concomitant]
     Dosage: UNK
  6. LEVOXYL [Concomitant]
     Dosage: UNK
  7. NAPROXEN [Concomitant]
     Dosage: UNK
  8. PRILOSEC [Concomitant]
     Dosage: UNK
  9. LIPITOR [Concomitant]
     Dosage: UNK
  10. TRAZODONE [Concomitant]
     Dosage: UNK
  11. VICODIN [Concomitant]
     Dosage: UNK
  12. MAXALT [Concomitant]
     Dosage: UNK

REACTIONS (10)
  - ARTHRALGIA [None]
  - ARTHRITIS [None]
  - DIARRHOEA [None]
  - FATIGUE [None]
  - HEADACHE [None]
  - HOT FLUSH [None]
  - MIGRAINE [None]
  - NIGHT SWEATS [None]
  - VULVOVAGINAL DRYNESS [None]
  - WEIGHT INCREASED [None]
